FAERS Safety Report 25387703 (Version 1)
Quarter: 2025Q2

REPORT INFORMATION
  Report Type: Spontaneous
  Country: AU (occurrence: AU)
  Receive Date: 20250603
  Receipt Date: 20250603
  Transmission Date: 20250717
  Serious: Yes (Hospitalization)
  Sender: AMGEN
  Company Number: AU-AMGEN-AUSSP2025104956

PATIENT
  Age: 45 Year
  Sex: Female

DRUGS (5)
  1. TRASTUZUMAB [Suspect]
     Active Substance: TRASTUZUMAB
     Indication: Hormone receptor negative HER2 positive breast cancer
     Dosage: 420 MILLIGRAM, Q3WK
     Route: 040
     Dates: start: 20240429
  2. PEMBROLIZUMAB [Suspect]
     Active Substance: PEMBROLIZUMAB
     Indication: Hormone receptor negative HER2 positive breast cancer
     Dosage: 200 MILLIGRAM, Q3WK
     Route: 040
     Dates: start: 20240429
  3. TUCATINIB [Suspect]
     Active Substance: TUCATINIB
     Indication: Hormone receptor negative HER2 positive breast cancer
     Dosage: 600 MILLIGRAM, QD
     Route: 048
     Dates: start: 20240429
  4. TUCATINIB [Suspect]
     Active Substance: TUCATINIB
     Dosage: UNK UNK, QD
     Route: 048
     Dates: end: 20240512
  5. TUCATINIB [Suspect]
     Active Substance: TUCATINIB
     Dosage: 600 MILLIGRAM, QD
     Route: 048
     Dates: end: 20240528

REACTIONS (1)
  - Rash maculo-papular [Recovered/Resolved]

NARRATIVE: CASE EVENT DATE: 20240512
